FAERS Safety Report 4953286-9 (Version None)
Quarter: 2006Q1

REPORT INFORMATION
  Report Type: 
  Country: None (occurrence: None)
  Receive Date: 20060324
  Receipt Date: 20051213
  Transmission Date: 20060701
  Serious: Yes (Disabling, Other)
  Sender: FDA-Public Use
  Company Number: GB-BRISTOL-MYERS SQUIBB COMPANY-13222013

PATIENT
  Age: 62 Year
  Sex: Male
  Weight: 82 kg

DRUGS (5)
  1. PARAPLATIN [Suspect]
     Indication: NON-SMALL CELL LUNG CANCER
     Route: 042
     Dates: start: 20050404, end: 20050614
  2. GEMCITABINE [Suspect]
     Indication: NON-SMALL CELL LUNG CANCER
     Route: 042
     Dates: start: 20050525, end: 20050621
  3. DIHYDROCODEINE [Concomitant]
     Dates: start: 20050101
  4. AMOXICILLIN [Concomitant]
     Indication: BRONCHITIS
     Dates: start: 20051101
  5. AMITRIPTYLINE HCL [Concomitant]
     Indication: PARAESTHESIA
     Route: 048
     Dates: start: 20050201

REACTIONS (3)
  - AGEUSIA [None]
  - HICCUPS [None]
  - PERIPHERAL SENSORY NEUROPATHY [None]
